FAERS Safety Report 5521267-2 (Version None)
Quarter: 2007Q4

REPORT INFORMATION
  Report Type: 
  Country: None (occurrence: None)
  Receive Date: 20071119
  Receipt Date: 20071114
  Transmission Date: 20080405
  Serious: Yes (Other)
  Sender: FDA-Public Use
  Company Number: GB-ROXANE LABORATORIES, INC-2007-BP-24484RO

PATIENT
  Age: 13 Year
  Sex: Female

DRUGS (4)
  1. DICLOFENAC SODIUM [Suspect]
     Indication: ANALGESIA
     Route: 054
  2. MESALAZINE [Concomitant]
  3. CEFOTAXIME [Concomitant]
  4. METRONIDAZOLE [Concomitant]

REACTIONS (8)
  - ANURIA [None]
  - BLOOD CREATININE INCREASED [None]
  - BLOOD POTASSIUM INCREASED [None]
  - HAEMODIALYSIS [None]
  - HAEMORRHAGIC INFARCTION [None]
  - RENAL FAILURE ACUTE [None]
  - RENAL INFARCT [None]
  - RENAL TUBULAR NECROSIS [None]
